FAERS Safety Report 9168245 (Version 1)
Quarter: 2013Q1

REPORT INFORMATION
  Report Type: Spontaneous
  Country: FR (occurrence: None)
  Receive Date: 20130304
  Receipt Date: 20130304
  Transmission Date: 20140127
  Serious: Yes (Disabling)
  Sender: FDA-Public Use
  Company Number: 0215543

PATIENT
  Age: 60 Year
  Sex: Male

DRUGS (1)
  1. TACHOSIL [Suspect]
     Indication: HAEMOSTASIS
     Dosage: 1 DOSAGE FORMS
     Route: 061
     Dates: start: 20101124, end: 20101124

REACTIONS (3)
  - Paralysis [None]
  - Laryngeal oedema [None]
  - Dyspnoea [None]
